FAERS Safety Report 7793092-3 (Version None)
Quarter: 2011Q4

REPORT INFORMATION
  Report Type: 
  Country: None (occurrence: None)
  Receive Date: 20111003
  Receipt Date: 20110920
  Transmission Date: 20120403
  Serious: Yes (Other)
  Sender: FDA-Public Use
  Company Number: PHHY2011BR80676

PATIENT
  Age: 35 Year
  Sex: Male

DRUGS (10)
  1. CARBOLITIUM [Concomitant]
     Dosage: 1200 MG, QD
  2. ZYPREXA [Concomitant]
     Dosage: UNK UKN, UNK
  3. CLONAZEPAM [Concomitant]
     Dosage: UNK UKN, UNK
  4. CITALOPRAM HYDROBROMIDE [Concomitant]
     Dosage: 40 MG, UNK
  5. DEPAKOTE [Concomitant]
     Dosage: 1500 MG, UNK
  6. DEPAKOTE [Concomitant]
     Dosage: 1000 MG, UNK
  7. TEGRETOL-XR [Suspect]
     Dosage: 400 MG, UNK
  8. DEPAKOTE [Concomitant]
     Dosage: 500 MG, UNK
  9. PURAN [Concomitant]
     Dosage: UNK UKN, UNK
  10. INVEGA [Concomitant]
     Dosage: UNK UKN, UNK

REACTIONS (10)
  - HALLUCINATION [None]
  - HYPOTENSION [None]
  - DEPRESSION [None]
  - DELIRIUM [None]
  - EPISTAXIS [None]
  - NAUSEA [None]
  - HAEMATOCHEZIA [None]
  - VOMITING [None]
  - MANIA [None]
  - ANAL HAEMORRHAGE [None]
